FAERS Safety Report 6676462-6 (Version None)
Quarter: 2010Q2

REPORT INFORMATION
  Report Type: 
  Country: None (occurrence: None)
  Receive Date: 20100412
  Receipt Date: 20100406
  Transmission Date: 20101027
  Serious: Yes (Death, Hospitalization, Other)
  Sender: FDA-Public Use
  Company Number: PHHY2010GB18907

PATIENT
  Sex: Female

DRUGS (1)
  1. CLOZARIL [Suspect]
     Indication: SCHIZOPHRENIA
     Dosage: 300 MG DAILY
     Route: 048
     Dates: start: 19910801

REACTIONS (3)
  - CIRCULATORY COLLAPSE [None]
  - DIABETES MELLITUS [None]
  - MYOCARDIAL INFARCTION [None]
